FAERS Safety Report 9479635 (Version 1)
Quarter: 2013Q3

REPORT INFORMATION
  Report Type: Spontaneous
  Country: BR (occurrence: BR)
  Receive Date: 20130827
  Receipt Date: 20130827
  Transmission Date: 20140515
  Serious: Yes (Other)
  Sender: FDA-Public Use
  Company Number: PHHY2013BR092410

PATIENT
  Age: 35 Year
  Sex: Male
  Weight: 85 kg

DRUGS (4)
  1. RITALINA [Suspect]
     Indication: ATTENTION DEFICIT/HYPERACTIVITY DISORDER
     Dosage: 2 DF, QD
  2. RITALINA [Suspect]
     Dosage: 22 DF, UNK
  3. RIVOTRIL [Suspect]
     Indication: ANXIETY
     Dosage: 1 TABLET AND A HALF-2 TABLETS
  4. RIVOTRIL [Suspect]
     Dosage: 30-40 TABLETS

REACTIONS (4)
  - Asthenia [Not Recovered/Not Resolved]
  - Suicide attempt [Unknown]
  - Confusional state [Not Recovered/Not Resolved]
  - Intentional overdose [Unknown]
